FAERS Safety Report 20090008 (Version 1)
Quarter: 2021Q4

REPORT INFORMATION
  Report Type: Spontaneous
  Country: CA (occurrence: None)
  Receive Date: 20211119
  Receipt Date: 20211119
  Transmission Date: 20220303
  Serious: Yes (Life-Threatening, Disabling, Other)
  Sender: FDA-Public Use
  Company Number: 2021A810936

PATIENT
  Age: 46 Year
  Sex: Female

DRUGS (2)
  1. SYMBICORT [Suspect]
     Active Substance: BUDESONIDE\FORMOTEROL FUMARATE DIHYDRATE
     Indication: Pneumonia bacterial
     Dosage: 100 UNKNOWN 2.0 DOSAGE FORMS 2 EVERY 1 DAYS
     Route: 055
  2. SYMBICORT [Suspect]
     Active Substance: BUDESONIDE\FORMOTEROL FUMARATE DIHYDRATE
     Indication: Pneumonia bacterial
     Dosage: 200 UNKNOWN 2.0 DOSAGE FORMS 2 EVERY 1 DAYS
     Route: 055

REACTIONS (7)
  - Blindness transient [Recovered/Resolved]
  - Eosinophilic granulomatosis with polyangiitis [Recovered/Resolved]
  - Gait inability [Recovered/Resolved]
  - Hand deformity [Recovered/Resolved]
  - Nerve injury [Recovered/Resolved]
  - Pain in extremity [Recovered/Resolved]
  - Vasculitis [Recovered/Resolved]
